FAERS Safety Report 9366317 (Version 1)
Quarter: 2013Q2

REPORT INFORMATION
  Report Type: Spontaneous
  Country: US (occurrence: US)
  Receive Date: 20130625
  Receipt Date: 20130625
  Transmission Date: 20140414
  Serious: No
  Sender: FDA-Public Use
  Company Number: US-GLAXOSMITHKLINE-A0992590A

PATIENT
  Age: 2 Year
  Sex: Female

DRUGS (2)
  1. VERAMYST [Suspect]
     Indication: RHINITIS ALLERGIC
     Dosage: 2SPR PER DAY
     Route: 045
     Dates: start: 2011, end: 2011
  2. NO CONCURRENT MEDICATION [Concomitant]

REACTIONS (1)
  - Candida infection [Recovered/Resolved]
